FAERS Safety Report 21187574 (Version 2)
Quarter: 2022Q4

REPORT INFORMATION
  Report Type: Report from Study
  Country: US (occurrence: US)
  Receive Date: 20220808
  Receipt Date: 20221019
  Transmission Date: 20230112
  Serious: Yes (Other)
  Sender: FDA-Public Use
  Company Number: US-BRISTOL-MYERS SQUIBB COMPANY-2022-082636

PATIENT
  Age: 58 Year
  Sex: Male
  Weight: 71.21 kg

DRUGS (2)
  1. REVLIMID [Suspect]
     Active Substance: LENALIDOMIDE
     Indication: Plasma cell myeloma
     Route: 048
     Dates: start: 202207
  2. REVLIMID [Suspect]
     Active Substance: LENALIDOMIDE
     Dosage: TAKE 1 CAPSULE DAILY
     Route: 048

REACTIONS (6)
  - Spinal compression fracture [Unknown]
  - Joint swelling [Unknown]
  - Peripheral swelling [Unknown]
  - Off label use [Unknown]
  - Nocturia [Unknown]
  - Cardiac disorder [Unknown]
